FAERS Safety Report 23428879 (Version 1)
Quarter: 2024Q1

REPORT INFORMATION
  Report Type: Spontaneous
  Country: CN (occurrence: CN)
  Receive Date: 20240122
  Receipt Date: 20240122
  Transmission Date: 20240410
  Serious: Yes (Other)
  Sender: FDA-Public Use
  Company Number: CN-PFIZER INC-PV202400006123

PATIENT
  Age: 54 Year
  Sex: Female
  Weight: 49 kg

DRUGS (3)
  1. METHOTREXATE SODIUM [Suspect]
     Active Substance: METHOTREXATE SODIUM
     Indication: Diffuse large B-cell lymphoma
     Dosage: 5 G, 1X/DAY
     Route: 041
     Dates: start: 20231222, end: 20231222
  2. SODIUM CHLORIDE [Concomitant]
     Active Substance: SODIUM CHLORIDE
     Indication: Vehicle solution use
     Dosage: 1000 ML, 1X/DAY
     Route: 041
     Dates: start: 20231222, end: 20231222
  3. LEUCOVORIN CALCIUM [Concomitant]
     Active Substance: LEUCOVORIN CALCIUM
     Dosage: 0.1 G, SINGLE
     Route: 042
     Dates: start: 20231223, end: 20231223

REACTIONS (2)
  - Blood creatinine abnormal [Recovering/Resolving]
  - Off label use [Unknown]

NARRATIVE: CASE EVENT DATE: 20231222
